FAERS Safety Report 5902548-7 (Version None)
Quarter: 2008Q3

REPORT INFORMATION
  Report Type: 
  Country: None (occurrence: None)
  Receive Date: 20080925
  Receipt Date: 20080911
  Transmission Date: 20090109
  Serious: Yes (Other)
  Sender: FDA-Public Use
  Company Number: 238696J08USA

PATIENT
  Age: 38 Year
  Sex: Female
  Weight: 83.9154 kg

DRUGS (7)
  1. REBIF [Suspect]
     Indication: MULTIPLE SCLEROSIS
     Dosage: 44 MCG, 3 IN 1 WEEKS, SUBCUTANEOUS
     Route: 058
     Dates: start: 20080711
  2. PLAQUENIL [Concomitant]
  3. EFFEXOR [Concomitant]
  4. ULTRAM ER (TRAMADOL HYDROCLORIDE) [Concomitant]
  5. AMANTADINE HCL [Concomitant]
  6. PHENERGAN (PROMETHAZINE) [Concomitant]
  7. ZANAFLEX [Concomitant]

REACTIONS (8)
  - DISEASE RECURRENCE [None]
  - HERPES ZOSTER [None]
  - INJECTION SITE ERYTHEMA [None]
  - INJECTION SITE MASS [None]
  - INJECTION SITE PAIN [None]
  - INJECTION SITE REACTION [None]
  - PNEUMONIA [None]
  - THROAT TIGHTNESS [None]
